FAERS Safety Report 6013100-X (Version None)
Quarter: 2008Q4

REPORT INFORMATION
  Report Type: 
  Country: None (occurrence: None)
  Receive Date: 20081219
  Receipt Date: 20081215
  Transmission Date: 20090506
  Serious: Yes (Other)
  Sender: FDA-Public Use
  Company Number: US-BIOGENIDEC-2008BI020881

PATIENT
  Sex: Female

DRUGS (2)
  1. AVONEX [Suspect]
     Indication: MULTIPLE SCLEROSIS
     Route: 030
     Dates: start: 20070101, end: 20080101
  2. AVONEX [Suspect]
     Route: 030
     Dates: start: 20080918

REACTIONS (5)
  - AMNESIA [None]
  - BALANCE DISORDER [None]
  - BONE MARROW FAILURE [None]
  - FALL [None]
  - MULTIPLE SCLEROSIS [None]
